FAERS Safety Report 4927449-2 (Version None)
Quarter: 2006Q1

REPORT INFORMATION
  Report Type: 
  Country: None (occurrence: None)
  Receive Date: 20060228
  Receipt Date: 20060220
  Transmission Date: 20060701
  Serious: Yes (Other)
  Sender: FDA-Public Use
  Company Number: AU-AVENTIS-200611507GDDC

PATIENT
  Age: 79 Year
  Sex: Female

DRUGS (9)
  1. ARAVA [Suspect]
     Indication: RHEUMATOID ARTHRITIS
     Route: 048
     Dates: start: 20050519
  2. IBUPROFEN [Concomitant]
     Dosage: DOSE: UNK
  3. ACETAMINOPHEN [Concomitant]
     Dosage: DOSE: UNK
  4. ACTONEL [Concomitant]
     Dosage: DOSE: UNK
  5. COVERSYL [Concomitant]
     Dosage: DOSE: UNK
  6. PRAVACHOL [Concomitant]
     Dosage: DOSE: UNK
  7. SOTALOL HCL [Concomitant]
     Dosage: DOSE: UNK
  8. ZANIDIP [Concomitant]
     Dosage: DOSE: UNK
  9. ASPIRIN [Concomitant]
     Dosage: DOSE: UNK

REACTIONS (3)
  - LIVER FUNCTION TEST ABNORMAL [None]
  - PULMONARY EMBOLISM [None]
  - RENAL CELL CARCINOMA STAGE UNSPECIFIED [None]
